FAERS Safety Report 9822089 (Version 5)
Quarter: 2014Q2

REPORT INFORMATION
  Report Type: Spontaneous
  Country: MT (occurrence: MT)
  Receive Date: 20140116
  Receipt Date: 20140409
  Transmission Date: 20141212
  Serious: Yes (Other)
  Sender: FDA-Public Use
  Company Number: MT-PFIZER INC-2014013432

PATIENT
  Age: 68 Year
  Sex: Male

DRUGS (5)
  1. LYRICA [Suspect]
     Indication: CERVICAL MYELOPATHY
     Dosage: 150 MG, DAILY
     Dates: start: 20100402, end: 20120401
  2. LYRICA [Suspect]
     Dosage: 300 MG, DAILY
     Dates: start: 2012, end: 201303
  3. IMODIUM ^JANSSEN^ [Concomitant]
     Indication: DIARRHOEA
     Dosage: 2 MG, AS NEEDED
  4. CATAFLAM [Concomitant]
     Indication: PAIN
     Dosage: TAKEN AS NEEDED STAT DOSE
  5. PANADOL [Concomitant]
     Indication: PAIN
     Dosage: 500 MG, AS NEEDED

REACTIONS (5)
  - Off label use [Recovered/Resolved]
  - Abdominal pain upper [Recovered/Resolved]
  - Abdominal distension [Recovered/Resolved]
  - Hepatotoxicity [Recovered/Resolved]
  - Liver function test abnormal [Recovered/Resolved]
